FAERS Safety Report 24717249 (Version 4)
Quarter: 2025Q1

REPORT INFORMATION
  Report Type: Report from Study
  Country: FR (occurrence: FR)
  Receive Date: 20241210
  Receipt Date: 20250205
  Transmission Date: 20250408
  Serious: No
  Sender: SERVIER
  Company Number: FR-SERVIER-S24016050

PATIENT

DRUGS (2)
  1. VORASIDENIB [Suspect]
     Active Substance: VORASIDENIB
     Indication: Astrocytoma
     Dosage: 40 MG, QD
     Route: 048
     Dates: start: 20241012, end: 20241202
  2. VORASIDENIB [Suspect]
     Active Substance: VORASIDENIB
     Dosage: 20 MG, QD
     Route: 048
     Dates: start: 202501

REACTIONS (1)
  - Hepatic cytolysis [Unknown]

NARRATIVE: CASE EVENT DATE: 20241123
